FAERS Safety Report 9835889 (Version 3)
Quarter: 2014Q1

REPORT INFORMATION
  Report Type: Spontaneous
  Country: CA (occurrence: CA)
  Receive Date: 20140122
  Receipt Date: 20140212
  Transmission Date: 20141002
  Serious: Yes (Hospitalization, Other)
  Sender: FDA-Public Use
  Company Number: CA-BAXTER-2014BAX001097

PATIENT
  Age: 62 Year
  Sex: Male

DRUGS (2)
  1. DIANEAL PD4 SOLUTION WITH 2.5% DEXTROSE AND 2.5 MEQ/L CALCIUM [Suspect]
     Indication: NEPHROPATHY
     Dosage: 2 BAGS
     Route: 033
     Dates: start: 2012
  2. EXTRANEAL [Suspect]
     Indication: NEPHROPATHY
     Dosage: 1 BAG
     Route: 033
     Dates: start: 2012

REACTIONS (4)
  - Aneurysm [Recovering/Resolving]
  - Memory impairment [Unknown]
  - Dysarthria [Unknown]
  - Stress at work [Unknown]
